FAERS Safety Report 19433015 (Version 1)
Quarter: 2021Q2

REPORT INFORMATION
  Report Type: Spontaneous
  Country: US (occurrence: US)
  Receive Date: 20210617
  Receipt Date: 20210617
  Transmission Date: 20210717
  Serious: No
  Sender: FDA-Public Use
  Company Number: US-ASCEND THERAPEUTICS US, LLC-2112846

PATIENT
  Age: 37 Year
  Sex: Female

DRUGS (5)
  1. ESTROGEL [Suspect]
     Active Substance: ESTRADIOL
  2. ESTRADIOL, NOS (ESTRADIOL) [Suspect]
     Active Substance: ESTRADIOL
     Route: 065
  3. CEFAZOLIN SODIUM. [Suspect]
     Active Substance: CEFAZOLIN SODIUM
     Route: 065
  4. ESTROGEL [Suspect]
     Active Substance: ESTRADIOL
     Indication: PRODUCT USED FOR UNKNOWN INDICATION
     Route: 065
  5. BALZIVA [Concomitant]
     Active Substance: ETHINYL ESTRADIOL\NORETHINDRONE
     Route: 065

REACTIONS (1)
  - Drug hypersensitivity [Unknown]
